FAERS Safety Report 10538693 (Version 2)
Quarter: 2015Q4

REPORT INFORMATION
  Report Type: Spontaneous
  Country: US (occurrence: US)
  Receive Date: 20141023
  Receipt Date: 20151014
  Transmission Date: 20160304
  Serious: No
  Sender: FDA-Public Use
  Company Number: US-RB PHARMACEUTICALS LIMITED-RB-69424-2014

PATIENT

DRUGS (1)
  1. SUBOXONE [Suspect]
     Active Substance: BUPRENORPHINE HYDROCHLORIDE\NALOXONE HYDROCHLORIDE
     Indication: PRODUCT USED FOR UNKNOWN INDICATION
     Dosage: 2 MG, UNK, 1 TABLET IN MORNING AND EVENING
     Route: 060

REACTIONS (5)
  - Drug prescribing error [Unknown]
  - Food intolerance [Unknown]
  - Glossodynia [Unknown]
  - Gingival pain [Unknown]
  - Stomatitis [Unknown]
